FAERS Safety Report 21020132 (Version 2)
Quarter: 2022Q3

REPORT INFORMATION
  Report Type: Report from Study
  Country: US (occurrence: US)
  Receive Date: 20220628
  Receipt Date: 20220819
  Transmission Date: 20221026
  Serious: No
  Sender: FDA-Public Use
  Company Number: US-INCYTE CORPORATION-2022IN005214

PATIENT

DRUGS (2)
  1. JAKAFI [Suspect]
     Active Substance: RUXOLITINIB
     Indication: Myelofibrosis
     Dosage: 15 MILLIGRAM, BID
     Route: 048
     Dates: start: 20210505
  2. NAVITOCLAX [Suspect]
     Active Substance: NAVITOCLAX
     Dosage: 100 MILLIGRAM, QD
     Route: 065

REACTIONS (1)
  - No adverse event [Unknown]
